FAERS Safety Report 6044141-4 (Version None)
Quarter: 2009Q1

REPORT INFORMATION
  Report Type: 
  Country: None (occurrence: None)
  Receive Date: 20090120
  Receipt Date: 20090112
  Transmission Date: 20090719
  Serious: Yes (Other)
  Sender: FDA-Public Use
  Company Number: US-ELI_LILLY_AND_COMPANY-US200901001826

PATIENT
  Age: 83 Year
  Sex: Female

DRUGS (1)
  1. HUMALOG [Suspect]
     Indication: DIABETES MELLITUS

REACTIONS (5)
  - CORONARY ARTERIAL STENT INSERTION [None]
  - HYPOACUSIS [None]
  - IMPLANTABLE DEFIBRILLATOR INSERTION [None]
  - PRODUCT QUALITY ISSUE [None]
  - VISUAL ACUITY REDUCED [None]
